FAERS Safety Report 9728024 (Version 1)
Quarter: 2013Q4

REPORT INFORMATION
  Report Type: Spontaneous
  Country: GB (occurrence: None)
  Receive Date: 20131127
  Receipt Date: 20131127
  Transmission Date: 20140711
  Serious: Yes (Hospitalization)
  Sender: FDA-Public Use
  Company Number: 2030083

PATIENT
  Age: 69 Year
  Sex: Female
  Weight: 66.2 kg

DRUGS (8)
  1. CARBOPLATIN [Suspect]
     Indication: BREAST CANCER
     Dosage: 642 MG, MILLIGRAM(S), UNKNOWN INTRAVENOUS
     Route: 042
  2. DOCETAXEL [Suspect]
     Indication: BREAST CANCER
     Dosage: 120 MG, MILLIGRAM(S) UNKNOWN{ INTRAVENOUS
  3. TRASTUZUMAB [Suspect]
     Dosage: 400MG MILLIGRAM(S) UNKNOWN, INTRAVENOUS
     Dates: start: 20120612
  4. (PERTUZUMAB) [Concomitant]
  5. (LANSOPRAZOLE) (LANSOPRAZOLE) [Concomitant]
  6. (THYROXINE) [Concomitant]
  7. (SUCRALFATE) [Concomitant]
  8. (DOMPERIDONE) [Concomitant]

REACTIONS (15)
  - Malaise [None]
  - Dehydration [None]
  - Nausea [None]
  - Vomiting [None]
  - Abdominal pain upper [None]
  - Diarrhoea [None]
  - Lethargy [None]
  - Chills [None]
  - Mucosal inflammation [None]
  - Blood sodium decreased [None]
  - Blood potassium decreased [None]
  - Blood creatinine increased [None]
  - Blood urea increased [None]
  - Renal impairment [None]
  - Malaise [None]
